FAERS Safety Report 9539999 (Version 2)
Quarter: 2013Q3

REPORT INFORMATION
  Report Type: Spontaneous
  Country: AT (occurrence: AT)
  Receive Date: 20130920
  Receipt Date: 20130920
  Transmission Date: 20140515
  Serious: Yes (Other)
  Sender: FDA-Public Use
  Company Number: AT-MPIJNJ-2013-05195

PATIENT
  Sex: 0

DRUGS (2)
  1. VELCADE [Suspect]
     Indication: FOLLICULAR THYROID CANCER
     Dosage: 1.5 MG/M2, UNK
     Route: 042
     Dates: start: 20100805, end: 20101104
  2. SORAFENIB [Suspect]
     Indication: FOLLICULAR THYROID CANCER
     Dosage: UNK
     Route: 065

REACTIONS (4)
  - Palmar-plantar erythrodysaesthesia syndrome [Unknown]
  - Metastases to lung [Unknown]
  - Diarrhoea [Unknown]
  - Off label use [Unknown]
